FAERS Safety Report 8814096 (Version 5)
Quarter: 2014Q4

REPORT INFORMATION
  Report Type: Spontaneous
  Country: GB (occurrence: None)
  Receive Date: 20120925
  Receipt Date: 20141003
  Transmission Date: 20150529
  Serious: Yes (Death, Hospitalization, Other)
  Sender: FDA-Public Use
  Company Number: GB-JNJFOC-20120604415

PATIENT
  Age: 65 Year
  Sex: Male

DRUGS (60)
  1. MAGNESIUM SULPHATE (MAGNESIUM SULFATE) [Concomitant]
  2. BISOPROLOL (BISOPROLOL) [Concomitant]
     Active Substance: BISOPROLOL
  3. HEPARIN [Concomitant]
     Active Substance: HEPARIN SODIUM
  4. MEROPENEM (MEROPENEM) [Concomitant]
     Active Substance: MEROPENEM
  5. SENNA [Concomitant]
     Active Substance: SENNA LEAF\SENNOSIDES\SENNOSIDES A AND B
  6. MORPHINE SULPHATE (MORPHINE SULFATE0 [Concomitant]
  7. BUDESONIDE (BUDESONIDE) [Concomitant]
     Active Substance: BUDESONIDE
  8. PIPERACILLIN AND TAZOBACTAM (PIPERACILLIN W/TAZOBACTAM) [Concomitant]
  9. SALBUTAMOL (SALBUTAMOL) [Concomitant]
     Active Substance: ALBUTEROL
  10. ZOPICLONE (ZOPICLONE) [Concomitant]
     Active Substance: ZOPICLONE
  11. PHOSPHATE (PHOSPHATES) EFFERVESCENT TABLETS [Concomitant]
  12. HARTMANN^S SOLUTION (RINGER-LACTATE) [Concomitant]
  13. MORPHINE SULPHATE (MORPHINE SULFATE) [Concomitant]
  14. AMIKACIN (AMIKACIN) [Concomitant]
     Active Substance: AMIKACIN
  15. DIHYDROCODEINE (DIHYDROCODEINE) [Concomitant]
     Active Substance: DIHYDROCODEINE
  16. HALOPERIDOL (HALOPERIDOL) (HALOPERIDOL) [Concomitant]
     Active Substance: HALOPERIDOL
  17. MAGNESIUM GLYCEROPHOSPHATE (MAGNESIUM GLYCEROPHOSPHATE) [Concomitant]
  18. ONDANSETRON. [Concomitant]
     Active Substance: ONDANSETRON
  19. PHOSPHATES (PHOSPHATES) [Concomitant]
  20. VORICONAZOLE (VORICONAZOLE) [Concomitant]
     Active Substance: VORICONAZOLE
  21. SALIVARY HORMONE (SALIVARY GLAND HORMONE) [Concomitant]
  22. CIPROFLOXACIN (CIPROFLOXACIN) [Concomitant]
     Active Substance: CIPROFLOXACIN
  23. HYDROCORTISONE SODIUM SUCCINATE (HYDROCORTISONE SODIUM SUCCINATE) [Concomitant]
  24. SODIUM CHLORIDE (SODIUM CHLORIDE) [Concomitant]
     Active Substance: SODIUM CHLORIDE
  25. TEICOPLANIN (TEICOPLANIN) [Concomitant]
     Active Substance: TEICOPLANIN
  26. MIDAZOLAM [Concomitant]
     Active Substance: MIDAZOLAM\MIDAZOLAM HYDROCHLORIDE
  27. ASPIRIN (ACETYLSALICYLIC ACID) [Concomitant]
     Active Substance: ASPIRIN
  28. BUTRANS [Concomitant]
     Active Substance: BUPRENORPHINE
  29. FUROSEMIDE (FUROSEMIDE) [Concomitant]
     Active Substance: FUROSEMIDE
  30. GENTAMICIN (GENTAMICIN) [Concomitant]
     Active Substance: GENTAMICIN
  31. BUDESONIDE (BUDESONIDE) [Concomitant]
     Active Substance: BUDESONIDE
  32. GLYCERINE (GLYCEROL) [Concomitant]
  33. HYOSCINE BUTYLBROMIDE (HYOSCINE BUTYLBROMIDE) [Concomitant]
  34. LINEZOLID (LINEZOLID) [Concomitant]
     Active Substance: LINEZOLID
  35. UROKINASE (UROKINASE) [Concomitant]
     Active Substance: UROKINASE
  36. DIHYDROCODEINE (DIHYDROCODEINE) [Concomitant]
     Active Substance: DIHYDROCODEINE
  37. PARACETAMOL (PARACETAMOL) [Concomitant]
     Active Substance: ACETAMINOPHEN
  38. CALCIUM GLUCONATE (CALCIUM GLUCONATE) [Concomitant]
     Active Substance: CALCIUM GLUCONATE
  39. GLUCOSE INFUSION (GLUCOSE) [Concomitant]
  40. DOCUSATE SODIUM (DOCUSATE SODIUM) [Concomitant]
     Active Substance: DOCUSATE SODIUM
  41. FLUCONAZOLE (FLUCONAZOLE) [Concomitant]
     Active Substance: FLUCONAZOLE
  42. LAXIDO (MOVICOL) [Concomitant]
  43. SANDO-K (POTASSIUM CHLORIDE) EFFERVESCENT TABLETS [Concomitant]
  44. SPIRONOLACTONE (SPIRONOLACTONE) [Concomitant]
     Active Substance: SPIRONOLACTONE
  45. SODIUM CHLORIDE INFUSION (SODIUM CHLORIDE) [Concomitant]
  46. AMITRIPTYLINE (AMITRIPTYLINE) [Concomitant]
     Active Substance: AMITRIPTYLINE
  47. GENTAMICIN (GENTAMICIN) [Concomitant]
     Active Substance: GENTAMICIN
  48. FOLIC ACID (FOLIC ACID) [Concomitant]
     Active Substance: FOLIC ACID
  49. FLUCONAZOLE (FLUCONAZOLE) [Concomitant]
     Active Substance: FLUCONAZOLE
  50. METRONIDAZOLE (METRONIDAZOLE) [Concomitant]
     Active Substance: METRONIDAZOLE
  51. PREGABALIN (PREGABALIN) [Concomitant]
     Active Substance: PREGABALIN
  52. DECITABINE. [Suspect]
     Active Substance: DECITABINE
     Indication: MYELODYSPLASTIC SYNDROME
     Dosage: TEMPORARILY INTERRUPTED
     Route: 042
  53. VOLPLEX (SUCCINYLATED GELATIN) [Concomitant]
  54. GLYCOPYRRONIUM (GLYCOPYRRONIUM) [Concomitant]
  55. CARBOCISTEINE (CARBOCISTEINE) [Concomitant]
  56. LACTULOSE (LACTULOSE) [Concomitant]
     Active Substance: LACTULOSE
  57. OMEPRAZOLE (OMEPRAZOLE) [Concomitant]
     Active Substance: OMEPRAZOLE
  58. ORAL BALANCE (ORAL BALANCE) [Concomitant]
  59. ZANAMIVIR (ZANAMIVIR) [Concomitant]
  60. POTASSIUM W/SODIUM CHLORIDE (POTASSIUM W/SODIUM CHLORIDE) [Concomitant]

REACTIONS (6)
  - Drug resistance [None]
  - Asthenia [None]
  - Cardiac failure [None]
  - Anaemia [None]
  - Bronchopneumonia [None]
  - Platelet count decreased [None]

NARRATIVE: CASE EVENT DATE: 20120606
